FAERS Safety Report 5682256-0 (Version None)
Quarter: 2008Q1

REPORT INFORMATION
  Report Type: 
  Country: None (occurrence: None)
  Receive Date: 20080326
  Receipt Date: 20080326
  Transmission Date: 20080703
  Serious: Yes (Other)
  Sender: FDA-Public Use
  Company Number: None

PATIENT
  Sex: Female
  Weight: 11.1585 kg

DRUGS (4)
  1. TAMIFLU [Suspect]
     Indication: ENCEPHALOPATHY
     Dosage: 1/2 TSP BID PO 4 DOSES
     Route: 048
  2. TAMIFLU [Suspect]
     Indication: INFLUENZA
     Dosage: 1/2 TSP BID PO 4 DOSES
     Route: 048
  3. TYLENOL (CAPLET) [Concomitant]
  4. MOTRIN [Concomitant]

REACTIONS (4)
  - COGNITIVE DISORDER [None]
  - HALLUCINATION [None]
  - INSOMNIA [None]
  - PYREXIA [None]
